FAERS Safety Report 18086822 (Version 6)
Quarter: 2020Q4

REPORT INFORMATION
  Report Type: Spontaneous
  Country: US (occurrence: US)
  Receive Date: 20200729
  Receipt Date: 20201204
  Transmission Date: 20210113
  Serious: Yes (Other)
  Sender: FDA-Public Use
  Company Number: US-PFIZER INC-2020288162

PATIENT
  Age: 61 Year
  Sex: Female

DRUGS (5)
  1. IBRANCE [Suspect]
     Active Substance: PALBOCICLIB
     Dosage: 125 MG
     Route: 048
     Dates: start: 20200710, end: 202007
  2. IBRANCE [Suspect]
     Active Substance: PALBOCICLIB
     Dosage: 125 MG
     Dates: start: 20200807
  3. IBRANCE [Suspect]
     Active Substance: PALBOCICLIB
     Dosage: 125 MG
     Dates: start: 20200810
  4. IBRANCE [Suspect]
     Active Substance: PALBOCICLIB
     Dosage: 125 MG
     Dates: start: 20200831
  5. IBRANCE [Suspect]
     Active Substance: PALBOCICLIB
     Dosage: UNK
     Route: 048
     Dates: start: 20200723, end: 2020

REACTIONS (13)
  - Weight increased [Unknown]
  - Fatigue [Unknown]
  - Decreased appetite [Unknown]
  - Feeling abnormal [Unknown]
  - Abdominal distension [Unknown]
  - Memory impairment [Unknown]
  - Amnesia [Unknown]
  - Swelling face [Unknown]
  - Vomiting [Unknown]
  - Constipation [Unknown]
  - COVID-19 [Unknown]
  - Dyspnoea exertional [Unknown]
  - Haemoptysis [Unknown]

NARRATIVE: CASE EVENT DATE: 2020
